FAERS Safety Report 11933682 (Version 1)
Quarter: 2016Q1

REPORT INFORMATION
  Report Type: Spontaneous
  Country: US (occurrence: None)
  Receive Date: 20160120
  Receipt Date: 20160120
  Transmission Date: 20160526
  Serious: Yes (Other)
  Sender: FDA-Public Use
  Company Number: None

PATIENT
  Age: 54 Year
  Sex: Female
  Weight: 122.47 kg

DRUGS (1)
  1. OTEZLA [Suspect]
     Active Substance: APREMILAST
     Indication: PSORIASIS
     Dosage: SHIPPED 10/15/14 - APPROX 1 WEEK AGO
     Route: 048
     Dates: start: 20141015

REACTIONS (1)
  - Vulvovaginal burning sensation [None]

NARRATIVE: CASE EVENT DATE: 20160115
